APPROVED DRUG PRODUCT: HYDROCODONE BITARTRATE AND ACETAMINOPHEN
Active Ingredient: ACETAMINOPHEN; HYDROCODONE BITARTRATE
Strength: 500MG;10MG
Dosage Form/Route: TABLET;ORAL
Application: A040356 | Product #001
Applicant: VINTAGE PHARMACEUTICALS INC
Approved: May 31, 2000 | RLD: No | RS: No | Type: DISCN